FAERS Safety Report 5215642-3 (Version None)
Quarter: 2007Q1

REPORT INFORMATION
  Report Type: 
  Country: None (occurrence: None)
  Receive Date: 20070123
  Receipt Date: 20070115
  Transmission Date: 20070707
  Serious: Yes (Hospitalization)
  Sender: FDA-Public Use
  Company Number: JP-BRISTOL-MYERS SQUIBB COMPANY-13637327

PATIENT
  Age: 35 Year
  Sex: Male

DRUGS (1)
  1. BARACLUDE [Suspect]
     Indication: HEPATITIS B
     Dosage: RESTARTED 11-JAN-2007
     Route: 048
     Dates: start: 20061102

REACTIONS (3)
  - CONVULSION [None]
  - ENCEPHALITIS HERPES [None]
  - LOSS OF CONSCIOUSNESS [None]
